FAERS Safety Report 14457204 (Version 3)
Quarter: 2018Q2

REPORT INFORMATION
  Report Type: Spontaneous
  Country: FR (occurrence: FR)
  Receive Date: 20180130
  Receipt Date: 20180625
  Transmission Date: 20180711
  Serious: Yes (Other)
  Sender: FDA-Public Use
  Company Number: FR-MYLANLABS-2018M1005385

PATIENT
  Age: 32 Year
  Sex: Female
  Weight: 78 kg

DRUGS (6)
  1. STELARA [Suspect]
     Active Substance: USTEKINUMAB
     Dosage: 45 MG, Q3W
     Route: 058
     Dates: start: 201702
  2. STELARA [Suspect]
     Active Substance: USTEKINUMAB
     Indication: PSORIATIC ARTHROPATHY
     Dosage: 45 MG, Q3W
     Route: 058
     Dates: start: 201607
  3. LIOTHYRONINE [Suspect]
     Active Substance: LIOTHYRONINE
     Indication: CONTRACEPTION
     Route: 015
  4. TRAMADOL. [Suspect]
     Active Substance: TRAMADOL
     Indication: PSORIATIC ARTHROPATHY
     Dosage: UNK
     Route: 048
  5. NAPROXENE [Suspect]
     Active Substance: NAPROXEN
     Indication: PSORIATIC ARTHROPATHY
     Dosage: 1100 MG, QD, 550 MG BID
     Route: 048
     Dates: start: 201611
  6. NAPROXENE [Suspect]
     Active Substance: NAPROXEN
     Dosage: 1100 MG, UNK
     Route: 048

REACTIONS (6)
  - Maternal exposure timing unspecified [Recovered/Resolved with Sequelae]
  - Device ineffective [Recovered/Resolved with Sequelae]
  - Off label use [Unknown]
  - Drug interaction [Unknown]
  - Inappropriate schedule of drug administration [Unknown]
  - No adverse event [Unknown]

NARRATIVE: CASE EVENT DATE: 201607
